FAERS Safety Report 5350552-2 (Version None)
Quarter: 2007Q2

REPORT INFORMATION
  Report Type: 
  Country: None (occurrence: None)
  Receive Date: 20070608
  Receipt Date: 20070529
  Transmission Date: 20071010
  Serious: Yes (Other)
  Sender: FDA-Public Use
  Company Number: US-BAYER-200711661BWH

PATIENT
  Age: 54 Year
  Sex: Male
  Weight: 116 kg

DRUGS (3)
  1. AVELOX [Suspect]
     Indication: SINUSITIS
     Dosage: TOTAL DAILY DOSE: 400 MG  UNIT DOSE: 400 MG
     Route: 048
     Dates: start: 20070525
  2. GLUCOPHAGE [Concomitant]
  3. COUGH SYRUP WITH HYDROCODONE [Concomitant]

REACTIONS (6)
  - EYE PENETRATION [None]
  - HEAD INJURY [None]
  - LOSS OF CONSCIOUSNESS [None]
  - ROAD TRAFFIC ACCIDENT [None]
  - SKIN LACERATION [None]
  - UNEVALUABLE EVENT [None]
